FAERS Safety Report 9705751 (Version 1)
Quarter: 2013Q4

REPORT INFORMATION
  Report Type: Spontaneous
  Country: US (occurrence: US)
  Receive Date: 20131122
  Receipt Date: 20131122
  Transmission Date: 20140711
  Serious: No
  Sender: FDA-Public Use
  Company Number: US-GILEAD-2008-0017950

PATIENT
  Sex: Female
  Weight: 86.18 kg

DRUGS (19)
  1. LETAIRIS [Suspect]
     Indication: PULMONARY ARTERIAL HYPERTENSION
     Route: 048
  2. PROZAC [Concomitant]
     Dosage: AS DIRECTED
     Route: 048
  3. FOSAMAX [Concomitant]
     Dosage: AS DIRECTED
     Route: 048
  4. MOTRIN [Concomitant]
     Dosage: AS DIRECTED
     Route: 048
  5. PLAQUENIL [Concomitant]
     Dosage: AS DIRECTED
     Route: 048
  6. ROBITUSSIN-DAC SYRUP [Concomitant]
     Dosage: AS DIRECTED
     Route: 048
  7. ALBUTEROL NEBULIZER [Concomitant]
     Dosage: AS DIRECTED
     Route: 048
  8. IMURAN [Concomitant]
     Dosage: AS DIRECTED
     Route: 048
  9. VALTREX [Concomitant]
     Dosage: AS DIRECTED
     Route: 048
  10. ALLEGRA [Concomitant]
     Dosage: AS DIRECTED
     Route: 048
  11. DITROPAN [Concomitant]
     Dosage: AS DIRECTED
     Route: 048
  12. SPIRIVA [Concomitant]
     Dosage: AS DIRECTED
     Route: 048
  13. CARDI-OMEGA 3 [Concomitant]
     Dosage: AS DIRECTED
     Route: 048
  14. PROAIR [Concomitant]
     Dosage: AS DIRECTED
     Route: 048
  15. LOPERAMIDE [Concomitant]
     Dosage: AS DIRECTED
     Route: 048
  16. PREDNISONE [Concomitant]
     Dosage: AS DIRECTED
     Route: 048
  17. MULTIVITAMIN [Concomitant]
     Dosage: AS DIRECTED
     Route: 048
  18. OMEPRAZOLE [Concomitant]
     Dosage: AS DIRECTED
     Route: 048
  19. CALCIUM + D [Concomitant]
     Dosage: AS DIRECTED
     Route: 048

REACTIONS (3)
  - Nausea [None]
  - Dizziness [None]
  - Headache [None]
